FAERS Safety Report 12881461 (Version 1)
Quarter: 2016Q4

REPORT INFORMATION
  Report Type: Spontaneous
  Country: MX (occurrence: MX)
  Receive Date: 20161025
  Receipt Date: 20161025
  Transmission Date: 20170207
  Serious: Yes (Other)
  Sender: FDA-Public Use
  Company Number: MX-PFIZER INC-2016492578

PATIENT
  Age: 83 Year
  Sex: Female

DRUGS (1)
  1. CORDARONE [Suspect]
     Active Substance: AMIODARONE HYDROCHLORIDE
     Indication: CARDIOMYOPATHY
     Dosage: 0.5 DF, EVERY 12 HOURS
     Route: 048
     Dates: start: 2009

REACTIONS (4)
  - Hypoacusis [Not Recovered/Not Resolved]
  - Lens extraction [Recovered/Resolved]
  - Osteoporosis [Not Recovered/Not Resolved]
  - Eyelid operation [Recovered/Resolved]

NARRATIVE: CASE EVENT DATE: 2013
